FAERS Safety Report 8840762 (Version 2)
Quarter: 2015Q2

REPORT INFORMATION
  Report Type: Report from Study
  Country: US (occurrence: US)
  Receive Date: 20121015
  Receipt Date: 20150415
  Transmission Date: 20150821
  Serious: Yes (Hospitalization)
  Sender: FDA-Public Use
  Company Number: US-ROCHE-1109808

PATIENT
  Sex: Male

DRUGS (2)
  1. NUTROPIN [Suspect]
     Active Substance: SOMATROPIN
     Indication: DWARFISM
     Dosage: 3 MG/INJECTION (0.3 ML)
     Route: 058
     Dates: start: 19981005
  2. PROTROPIN [Suspect]
     Active Substance: SOMATREM
     Indication: DWARFISM
     Dosage: FORM STRENGTH 10 MG
     Route: 065

REACTIONS (3)
  - Malaise [Unknown]
  - Headache [Not Recovered/Not Resolved]
  - Vomiting [Unknown]
